FAERS Safety Report 12528316 (Version 1)
Quarter: 2016Q3

REPORT INFORMATION
  Report Type: Spontaneous
  Country: GB (occurrence: GB)
  Receive Date: 20160705
  Receipt Date: 20160705
  Transmission Date: 20161109
  Serious: Yes (Hospitalization)
  Sender: FDA-Public Use
  Company Number: GB-SA-2016SA119538

PATIENT
  Sex: Female

DRUGS (5)
  1. PEMETREXED [Suspect]
     Active Substance: PEMETREXED
     Route: 065
  2. APREPITANT. [Suspect]
     Active Substance: APREPITANT
     Route: 065
  3. XGEVA [Suspect]
     Active Substance: DENOSUMAB
     Route: 065
  4. AVASTIN [Suspect]
     Active Substance: BEVACIZUMAB
     Route: 065
  5. CLEXANE [Suspect]
     Active Substance: ENOXAPARIN SODIUM
     Indication: THROMBOSIS
     Route: 065

REACTIONS (8)
  - Constipation [Unknown]
  - Device occlusion [Unknown]
  - Pain in extremity [Unknown]
  - Blood urine present [Unknown]
  - Haemoglobin decreased [Unknown]
  - Insomnia [Unknown]
  - Alopecia [Unknown]
  - Fatigue [Unknown]
